FAERS Safety Report 6594923-5 (Version None)
Quarter: 2010Q1

REPORT INFORMATION
  Report Type: 
  Country: None (occurrence: None)
  Receive Date: 20100222
  Receipt Date: 20100210
  Transmission Date: 20100710
  Serious: Yes (Other)
  Sender: FDA-Public Use
  Company Number: JP-PFIZER INC-2010018933

PATIENT
  Age: 28 Year
  Sex: Male

DRUGS (3)
  1. METHYLPREDNISOLONE 4MG TAB [Suspect]
     Indication: IMMUNOSUPPRESSION
  2. TACROLIMUS [Concomitant]
     Indication: IMMUNOSUPPRESSION
  3. MIZORIBINE [Concomitant]
     Indication: IMMUNOSUPPRESSION

REACTIONS (1)
  - CROHN'S DISEASE [None]
